FAERS Safety Report 8113838-4 (Version None)
Quarter: 2012Q1

REPORT INFORMATION
  Report Type: 
  Country: None (occurrence: None)
  Receive Date: 20120203
  Receipt Date: 20120201
  Transmission Date: 20120608
  Serious: Yes (Other)
  Sender: FDA-Public Use
  Company Number: BR-BAYER-2012-010657

PATIENT
  Age: 28 Year
  Sex: Female
  Weight: 72 kg

DRUGS (3)
  1. NAPROSYN [Suspect]
     Indication: ARTHRALGIA
     Dosage: 500 MG, BID
     Route: 048
     Dates: start: 20120126, end: 20120130
  2. NAPROSYN [Suspect]
     Indication: JOINT EFFUSION
  3. MESIGYNA [Concomitant]
     Indication: CONTRACEPTION
     Dosage: 1 DF, Q1MON
     Route: 030
     Dates: start: 20110601

REACTIONS (6)
  - ABDOMINAL PAIN UPPER [None]
  - RETCHING [None]
  - GAIT DISTURBANCE [None]
  - MALAISE [None]
  - PAIN IN EXTREMITY [None]
  - HAEMATOCHEZIA [None]
